FAERS Safety Report 13760068 (Version 1)
Quarter: 2017Q3

REPORT INFORMATION
  Report Type: Spontaneous
  Country: GB (occurrence: GB)
  Receive Date: 20170717
  Receipt Date: 20170717
  Transmission Date: 20171127
  Serious: Yes (Other)
  Sender: FDA-Public Use
  Company Number: GB-PFIZER INC-2017308495

PATIENT
  Sex: Male

DRUGS (2)
  1. IKOREL [Suspect]
     Active Substance: NICORANDIL
     Dosage: 20 MG, 2X/DAY
     Route: 048
  2. RAMIPRIL. [Suspect]
     Active Substance: RAMIPRIL
     Dosage: UNK
     Route: 048

REACTIONS (1)
  - Cardiac failure [Unknown]
